FAERS Safety Report 4447961-2 (Version None)
Quarter: 2004Q3

REPORT INFORMATION
  Report Type: 
  Country: None (occurrence: None)
  Receive Date: 20040909
  Receipt Date: 20040909
  Transmission Date: 20050211
  Serious: No
  Sender: FDA-Public Use
  Company Number: None

PATIENT
  Sex: Male
  Weight: 80.7403 kg

DRUGS (1)
  1. MORPHINE [Suspect]
     Indication: PANCREATITIS CHRONIC
     Dosage: PO 100MG BID
     Route: 048
     Dates: end: 19990101

REACTIONS (1)
  - UNEVALUABLE EVENT [None]
